FAERS Safety Report 4916719-X (Version None)
Quarter: 2006Q1

REPORT INFORMATION
  Report Type: 
  Country: None (occurrence: None)
  Receive Date: 20060220
  Receipt Date: 20060207
  Transmission Date: 20060701
  Serious: Yes (Other)
  Sender: FDA-Public Use
  Company Number: PHEH2006US01871

PATIENT
  Sex: Female

DRUGS (8)
  1. TEGRETOL [Suspect]
     Indication: CONVULSION
     Dosage: 200 MG, UNK
     Route: 048
  2. CARDIOVASCULAR DRUGS [Concomitant]
  3. MIGRAINE DRUGS [Concomitant]
  4. CARBAMAZEPINE [Suspect]
     Indication: CONVULSION
     Dosage: 200 MG, UNK
     Route: 048
  5. CARBAMAZEPINE [Suspect]
     Dosage: 200 MG, UNK
     Route: 048
  6. LIPITOR [Concomitant]
  7. ANTIHYPERTENSIVES [Concomitant]
  8. THYROID THERAPY [Concomitant]

REACTIONS (2)
  - HAEMATOCHEZIA [None]
  - VOMITING [None]
